FAERS Safety Report 8388476-9 (Version None)
Quarter: 2012Q2

REPORT INFORMATION
  Report Type: 
  Country: None (occurrence: None)
  Receive Date: 20120525
  Receipt Date: 20120512
  Transmission Date: 20120825
  Serious: Yes (Other)
  Sender: FDA-Public Use
  Company Number: IN-ROCHE-1070617

PATIENT
  Age: 51 Year
  Sex: Male

DRUGS (2)
  1. METALYSE [Suspect]
     Indication: ACUTE MYOCARDIAL INFARCTION
     Route: 040
     Dates: start: 20120512, end: 20120512
  2. ENOXAPARIN [Concomitant]

REACTIONS (1)
  - ELECTROCARDIOGRAM ST SEGMENT ELEVATION [None]
